FAERS Safety Report 12432242 (Version 1)
Quarter: 2016Q2

REPORT INFORMATION
  Report Type: Report from Study
  Country: US (occurrence: US)
  Receive Date: 20160603
  Receipt Date: 20160603
  Transmission Date: 20160815
  Serious: Yes (Other)
  Sender: FDA-Public Use
  Company Number: US-BAYER-2016-102567

PATIENT
  Sex: Female
  Weight: 61.22 kg

DRUGS (1)
  1. ADEMPAS [Suspect]
     Active Substance: RIOCIGUAT
     Indication: PULMONARY ARTERIAL HYPERTENSION
     Dosage: 1 MG, TID
     Route: 048
     Dates: start: 20160517

REACTIONS (9)
  - Oxygen saturation decreased [None]
  - Eye disorder [None]
  - Nausea [None]
  - Oropharyngeal pain [None]
  - Back pain [None]
  - Tremor [None]
  - Chest pain [None]
  - Headache [None]
  - Heart rate increased [None]
